FAERS Safety Report 6051349-0 (Version None)
Quarter: 2009Q1

REPORT INFORMATION
  Report Type: 
  Country: None (occurrence: None)
  Receive Date: 20090121
  Receipt Date: 20090105
  Transmission Date: 20090719
  Serious: Yes (Life-Threatening)
  Sender: FDA-Public Use
  Company Number: 2008001978

PATIENT
  Age: 61 Year
  Sex: Male

DRUGS (4)
  1. ERLOTINIB (ERLOTINIB) (TABLET) (ERLOTINIB) [Suspect]
     Indication: LUNG ADENOCARCINOMA
     Dosage: ORAL
     Route: 048
     Dates: start: 20080516, end: 20080722
  2. . [Concomitant]
  3. . [Concomitant]
  4. . [Concomitant]

REACTIONS (2)
  - CEREBRAL HAEMORRHAGE [None]
  - RASH [None]
